FAERS Safety Report 4366916-X (Version None)
Quarter: 2004Q2

REPORT INFORMATION
  Report Type: 
  Country: None (occurrence: None)
  Receive Date: 20040527
  Receipt Date: 20040527
  Transmission Date: 20050107
  Serious: Yes (Death)
  Sender: FDA-Public Use
  Company Number: None

PATIENT
  Age: 36 Year
  Sex: Female
  Weight: 48 kg

DRUGS (2)
  1. POTASSIUM  PHOSPHATE [Suspect]
     Indication: BLOOD PHOSPHORUS DECREASED
     Dosage: 40 MG X 1 IV
     Route: 042
     Dates: start: 20040201
  2. CALCIUM GLUCONATE [Suspect]
     Indication: BLOOD CALCIUM DECREASED
     Dosage: 1 GM X 1 IV
     Route: 042
     Dates: start: 20040201

REACTIONS (2)
  - MEDICATION ERROR [None]
  - PULMONARY EMBOLISM [None]
